FAERS Safety Report 16749855 (Version 1)
Quarter: 2019Q3

REPORT INFORMATION
  Report Type: Spontaneous
  Country: FR (occurrence: FR)
  Receive Date: 20190828
  Receipt Date: 20190828
  Transmission Date: 20191005
  Serious: Yes (Hospitalization, Other)
  Sender: FDA-Public Use
  Company Number: PHHY2019FR197947

PATIENT
  Age: 55 Year
  Sex: Male

DRUGS (6)
  1. TAVANIC [Suspect]
     Active Substance: LEVOFLOXACIN
     Indication: LUNG DISORDER
     Dosage: 500 MG,UNK
     Route: 048
     Dates: start: 20120623, end: 20120625
  2. CLOPIDOGREL [Concomitant]
     Active Substance: CLOPIDOGREL BISULFATE
     Indication: PERIPHERAL ARTERIAL OCCLUSIVE DISEASE
     Dosage: 75 MG,UNK
     Route: 065
  3. ARIXTRA [Concomitant]
     Active Substance: FONDAPARINUX SODIUM
     Indication: PULMONARY EMBOLISM
     Dosage: UNK
     Route: 058
  4. PREVISCAN [Concomitant]
     Indication: ADJUVANT THERAPY
     Dosage: 20 MG, UNK
     Route: 065
  5. AMOXICILLIN+CLAVULANIC ACID [Suspect]
     Active Substance: AMOXICILLIN\CLAVULANIC ACID
     Indication: LUNG DISORDER
     Dosage: 1 G, QD
     Route: 048
     Dates: start: 20120621, end: 20120623
  6. PENTOXIFYLLINE. [Concomitant]
     Active Substance: PENTOXIFYLLINE
     Indication: ADJUVANT THERAPY
     Dosage: 20 MG,UNK
     Route: 065

REACTIONS (1)
  - Hepatocellular injury [Recovering/Resolving]

NARRATIVE: CASE EVENT DATE: 20120625
